FAERS Safety Report 4437691-5 (Version None)
Quarter: 2004Q3

REPORT INFORMATION
  Report Type: 
  Country: None (occurrence: None)
  Receive Date: 20040831
  Receipt Date: 20040610
  Transmission Date: 20050211
  Serious: No
  Sender: FDA-Public Use
  Company Number: 17332

PATIENT
  Age: 75 Year
  Sex: Male

DRUGS (4)
  1. ZOVIRAX [Suspect]
     Dosage: 1APP TWICE PER DAY
     Route: 061
     Dates: start: 20040608, end: 20040609
  2. FAMVIR [Concomitant]
  3. PROPOXYPHENE [Concomitant]
  4. APAP TAB [Concomitant]

REACTIONS (2)
  - APPLICATION SITE PAIN [None]
  - PHARMACEUTICAL PRODUCT COMPLAINT [None]
